FAERS Safety Report 4363776-8 (Version None)
Quarter: 2004Q2

REPORT INFORMATION
  Report Type: 
  Country: None (occurrence: None)
  Receive Date: 20040521
  Receipt Date: 20040324
  Transmission Date: 20050107
  Serious: Yes (Hospitalization)
  Sender: FDA-Public Use
  Company Number: USA-2004-0015159

PATIENT
  Age: 65 Year
  Sex: Male

DRUGS (7)
  1. OXYCONTIN [Suspect]
     Dosage: 60 MG, ORAL
     Route: 048
     Dates: start: 20031218, end: 20031219
  2. DILTIAZEM [Concomitant]
  3. VANCOMYCIN [Concomitant]
  4. OLANZAPINE [Concomitant]
  5. OMEPRAZOLE [Concomitant]
  6. AVANDIA [Concomitant]
  7. METFORMIN HCL [Concomitant]

REACTIONS (4)
  - COMA [None]
  - HYPERHIDROSIS [None]
  - HYPOTENSION [None]
  - PALLOR [None]
